FAERS Safety Report 7900446 (Version 5)
Quarter: 2013Q3

REPORT INFORMATION
  Report Type: Report from Study
  Country: FR (occurrence: FR)
  Receive Date: 20110415
  Receipt Date: 20130711
  Transmission Date: 20140515
  Serious: Yes (Hospitalization, Other)
  Sender: FDA-Public Use
  Company Number: FR-BRISTOL-MYERS SQUIBB COMPANY-15393689

PATIENT
  Age: 64 Year
  Sex: Female
  Weight: 79 kg

DRUGS (4)
  1. IPILIMUMAB [Suspect]
     Indication: METASTATIC MALIGNANT MELANOMA
     Dosage: 4 INF:03 SEPTEMBER, 27 SEPTEMBER, 15 OCTOBER AND 04 NOVEMBER 2010. STARTED 9 MONTHS AGO.INJ.
     Route: 042
     Dates: start: 20100903
  2. LEXOMIL [Concomitant]
     Indication: ANXIETY
     Dosage: 1DF=1/4TAB
     Route: 048
     Dates: start: 200807
  3. DONORMYL [Concomitant]
     Indication: ANXIETY
     Dosage: 15MG TABS,1DF=1TAB
     Route: 048
     Dates: start: 200905
  4. ESBERIVEN [Concomitant]
     Indication: VENOUS INSUFFICIENCY
     Route: 048
     Dates: start: 200905

REACTIONS (5)
  - Extraocular muscle disorder [Recovered/Resolved]
  - Vitiligo [Unknown]
  - Rash maculo-papular [Recovered/Resolved]
  - Eosinophilia [Recovered/Resolved]
  - Alopecia [Unknown]
